FAERS Safety Report 4438784-9 (Version None)
Quarter: 2004Q3

REPORT INFORMATION
  Report Type: 
  Country: None (occurrence: None)
  Receive Date: 20040901
  Receipt Date: 20040202
  Transmission Date: 20050211
  Serious: Yes (Death, Life-Threatening, Hospitalization)
  Sender: FDA-Public Use
  Company Number: GB-JNJFOC-20040202798

PATIENT
  Sex: Male

DRUGS (10)
  1. REMICADE [Suspect]
     Indication: DRUG USE FOR UNKNOWN INDICATION
     Route: 042
  2. SULFASALAZINE [Concomitant]
  3. AZATHIOPRINE [Concomitant]
  4. SULFASALAZINE [Concomitant]
  5. PREDNISOLONE [Concomitant]
  6. ETORICOXIB [Concomitant]
  7. DIHYDROCODEINE [Concomitant]
  8. ALENDRONATE SODIUM [Concomitant]
  9. CALICHEW [Concomitant]
  10. CALICHEW [Concomitant]

REACTIONS (4)
  - DRUG INEFFECTIVE [None]
  - INTERSTITIAL LUNG DISEASE [None]
  - PULMONARY FIBROSIS [None]
  - RESPIRATORY FAILURE [None]
